FAERS Safety Report 5376221-0 (Version None)
Quarter: 2007Q3

REPORT INFORMATION
  Report Type: 
  Country: None (occurrence: None)
  Receive Date: 20070702
  Receipt Date: 20070620
  Transmission Date: 20080115
  Serious: Yes (Hospitalization)
  Sender: FDA-Public Use
  Company Number: JP-MERCK-0706USA03921

PATIENT
  Age: 70 Year
  Sex: Female

DRUGS (9)
  1. NOROXIN [Suspect]
     Indication: UPPER RESPIRATORY TRACT INFLAMMATION
     Route: 048
     Dates: start: 20061120, end: 20061120
  2. ALLOPURINOL [Suspect]
     Indication: HYPERURICAEMIA
     Route: 048
     Dates: start: 20061111, end: 20061120
  3. NIVADIL [Concomitant]
     Indication: HYPERTENSION
     Route: 048
     Dates: start: 19920116, end: 20061120
  4. EBRANTIL [Concomitant]
     Indication: HYPERTENSION
     Route: 048
     Dates: start: 19920116, end: 20061120
  5. CARNACULIN [Concomitant]
     Indication: HYPERTENSION
     Route: 048
     Dates: start: 19920116, end: 20061120
  6. BAYCARON [Concomitant]
     Indication: HYPERTENSION
     Route: 048
     Dates: start: 19920116, end: 20061120
  7. KYORIN AP2 [Concomitant]
     Route: 048
     Dates: start: 20061120, end: 20061120
  8. CODEINE PHOSPHATE [Concomitant]
     Route: 048
     Dates: start: 20061120, end: 20061120
  9. [THERAPY UNSPECIFIED] [Concomitant]
     Route: 048
     Dates: start: 20061120, end: 20061120

REACTIONS (1)
  - DRUG ERUPTION [None]
